FAERS Safety Report 4665238-7 (Version None)
Quarter: 2005Q2

REPORT INFORMATION
  Report Type: 
  Country: None (occurrence: None)
  Receive Date: 20050517
  Receipt Date: 20050429
  Transmission Date: 20051028
  Serious: Yes (Hospitalization, Other)
  Sender: FDA-Public Use
  Company Number: USA050596939

PATIENT
  Age: 8 Year
  Sex: Female
  Weight: 23 kg

DRUGS (1)
  1. STRATTERA [Suspect]
     Indication: ATTENTION DEFICIT/HYPERACTIVITY DISORDER
     Dosage: 25 MG DAY
     Dates: start: 20050321, end: 20050425

REACTIONS (9)
  - ALPHA-1 ANTI-TRYPSIN INCREASED [None]
  - ANTINUCLEAR ANTIBODY POSITIVE [None]
  - CHOLESTASIS [None]
  - DRUG LEVEL BELOW THERAPEUTIC [None]
  - FALSE POSITIVE LABORATORY RESULT [None]
  - FOOD POISONING [None]
  - HEPATIC NECROSIS [None]
  - HEPATITIS [None]
  - PAIN IN EXTREMITY [None]
